FAERS Safety Report 5522116-9 (Version None)
Quarter: 2007Q4

REPORT INFORMATION
  Report Type: 
  Country: None (occurrence: None)
  Receive Date: 20071115
  Receipt Date: 20071029
  Transmission Date: 20080405
  Serious: Yes (Other)
  Sender: FDA-Public Use
  Company Number: 8027903

PATIENT
  Age: 36 Year
  Sex: Male

DRUGS (2)
  1. PREDNISOLONE [Suspect]
     Indication: UVEITIS
     Dosage: 150 MG 1/D
  2. CYCLOSPORINE [Suspect]
     Indication: UVEITIS
     Dosage: 12.5 MG 1/D

REACTIONS (8)
  - ANTERIOR CHAMBER DISORDER [None]
  - DISEASE RECURRENCE [None]
  - EYE INFLAMMATION [None]
  - GASTROENTERITIS [None]
  - UVEITIS [None]
  - VISION BLURRED [None]
  - VITREOUS DISORDER [None]
  - VITREOUS FLOATERS [None]
